FAERS Safety Report 22933538 (Version 2)
Quarter: 2023Q4

REPORT INFORMATION
  Report Type: Spontaneous
  Country: PL (occurrence: PL)
  Receive Date: 20230912
  Receipt Date: 20231013
  Transmission Date: 20240110
  Serious: Yes (Hospitalization)
  Sender: FDA-Public Use
  Company Number: PL-JNJFOC-20230918969

PATIENT
  Sex: Female
  Weight: 64 kg

DRUGS (8)
  1. VELETRI [Suspect]
     Active Substance: EPOPROSTENOL
     Indication: Pulmonary arterial hypertension
     Dosage: VELETRI INFUSION 45,000 UNITS
     Route: 042
     Dates: start: 2020
  2. BOSENTAN [Suspect]
     Active Substance: BOSENTAN
     Indication: Pulmonary arterial hypertension
     Route: 048
  3. SILDENAFIL [Concomitant]
     Active Substance: SILDENAFIL
  4. TREPROSTINIL SODIUM [Concomitant]
     Active Substance: TREPROSTINIL SODIUM
  5. FUROSEMIDE [Concomitant]
     Active Substance: FUROSEMIDE
  6. POTASSIUM BICARBONATE\POTASSIUM CITRATE [Concomitant]
     Active Substance: POTASSIUM BICARBONATE\POTASSIUM CITRATE
  7. IRON [Concomitant]
     Active Substance: IRON
  8. VITAMIN B-COMPLEX [Concomitant]
     Active Substance: DEXPANTHENOL\NIACINAMIDE\PYRIDOXINE HYDROCHLORIDE\RIBOFLAVIN 5^-PHOSPHATE SODIUM\THIAMINE HYDROCHLOR

REACTIONS (10)
  - Full blood count abnormal [Recovered/Resolved]
  - Haemorrhage [Recovered/Resolved]
  - Liver injury [Unknown]
  - Epistaxis [Unknown]
  - Right ventricular systolic pressure increased [Unknown]
  - Oxygen saturation decreased [Unknown]
  - Thrombocytopenia [Unknown]
  - Genital haemorrhage [Unknown]
  - Helicobacter infection [Unknown]
  - Anaemia macrocytic [Unknown]

NARRATIVE: CASE EVENT DATE: 20230701
